FAERS Safety Report 4311649-9 (Version None)
Quarter: 2004Q1

REPORT INFORMATION
  Report Type: 
  Country: None (occurrence: None)
  Receive Date: 20040303
  Receipt Date: 20040303
  Transmission Date: 20041129
  Serious: Yes (Life-Threatening)
  Sender: FDA-Public Use
  Company Number: None

PATIENT
  Sex: Female
  Weight: 61 kg

DRUGS (1)
  1. YASMIN [Suspect]
     Indication: CONTRACEPTION
     Dosage: 1TAB QD ORAL
     Route: 048
     Dates: start: 20031225, end: 20040225

REACTIONS (2)
  - ARTERIAL OCCLUSIVE DISEASE [None]
  - PULMONARY EMBOLISM [None]
